FAERS Safety Report 11898868 (Version 2)
Quarter: 2016Q1

REPORT INFORMATION
  Report Type: Spontaneous
  Country: US (occurrence: US)
  Receive Date: 20160108
  Receipt Date: 20160223
  Transmission Date: 20160526
  Serious: No
  Sender: FDA-Public Use
  Company Number: US-009507513-1601USA001277

PATIENT
  Sex: Female

DRUGS (1)
  1. FOLLISTIM [Suspect]
     Active Substance: FOLLITROPIN
     Dosage: 150 UNSPECIFIED UNITS
     Dates: start: 20150924

REACTIONS (1)
  - Ovarian disorder [Not Recovered/Not Resolved]

NARRATIVE: CASE EVENT DATE: 2015
